FAERS Safety Report 7656135-3 (Version None)
Quarter: 2011Q3

REPORT INFORMATION
  Report Type: 
  Country: None (occurrence: None)
  Receive Date: 20110804
  Receipt Date: 20110728
  Transmission Date: 20111222
  Serious: Yes (Hospitalization)
  Sender: FDA-Public Use
  Company Number: AU-B.I. PHARMACEUTICALS,INC./RIDGEFIELD-2011-AU-00528AU

PATIENT
  Sex: Female

DRUGS (1)
  1. PRADAXA [Suspect]
     Indication: ATRIAL FIBRILLATION

REACTIONS (7)
  - GASTRIC HAEMORRHAGE [None]
  - IRON DEFICIENCY [None]
  - GASTRIC ANTRAL VASCULAR ECTASIA [None]
  - HAEMOGLOBIN DECREASED [None]
  - PALLOR [None]
  - MEAN CELL VOLUME DECREASED [None]
  - THROMBOCYTOSIS [None]
